FAERS Safety Report 15824839 (Version 1)
Quarter: 2019Q1

REPORT INFORMATION
  Report Type: Report from Study
  Country: US (occurrence: US)
  Receive Date: 20190115
  Receipt Date: 20190115
  Transmission Date: 20190417
  Serious: Yes (Other)
  Sender: FDA-Public Use
  Company Number: US-ROCHE-2242905

PATIENT
  Sex: Female

DRUGS (32)
  1. AVASTIN [Suspect]
     Active Substance: BEVACIZUMAB
     Indication: METASTASES TO THE RESPIRATORY SYSTEM
  2. XELODA [Suspect]
     Active Substance: CAPECITABINE
     Indication: METASTASES TO THE RESPIRATORY SYSTEM
  3. XELODA [Suspect]
     Active Substance: CAPECITABINE
     Indication: METASTASES TO PERITONEUM
  4. MORPHINE SULPHATE [Concomitant]
     Active Substance: MORPHINE SULFATE
  5. DIAZEPAM. [Concomitant]
     Active Substance: DIAZEPAM
     Route: 065
  6. NEURONTIN [Concomitant]
     Active Substance: GABAPENTIN
     Route: 048
  7. TYLENOL [Concomitant]
     Active Substance: ACETAMINOPHEN
  8. NASONEX [Concomitant]
     Active Substance: MOMETASONE FUROATE
     Route: 065
  9. PROCHLORPERAZINE MALEATE. [Concomitant]
     Active Substance: PROCHLORPERAZINE MALEATE
     Route: 065
  10. AVASTIN [Suspect]
     Active Substance: BEVACIZUMAB
     Indication: COLON CANCER
  11. CYCLOBENZAPRINE. [Concomitant]
     Active Substance: CYCLOBENZAPRINE
     Route: 065
  12. LUMIGAN [Concomitant]
     Active Substance: BIMATOPROST
     Route: 065
  13. OXALIPLATIN. [Concomitant]
     Active Substance: OXALIPLATIN
  14. AVASTIN [Suspect]
     Active Substance: BEVACIZUMAB
     Indication: METASTASES TO GASTROINTESTINAL TRACT
  15. XELODA [Suspect]
     Active Substance: CAPECITABINE
     Indication: METASTASES TO GASTROINTESTINAL TRACT
  16. EMLA [Concomitant]
     Active Substance: LIDOCAINE\PRILOCAINE
     Route: 065
  17. LORAZEPAM. [Concomitant]
     Active Substance: LORAZEPAM
     Route: 065
  18. NORCO [Concomitant]
     Active Substance: ACETAMINOPHEN\HYDROCODONE BITARTRATE
     Dosage: 10-325MG TABLET
     Route: 065
  19. ZOLPIDEM [Concomitant]
     Active Substance: ZOLPIDEM\ZOLPIDEM TARTRATE
     Route: 065
  20. AVASTIN [Suspect]
     Active Substance: BEVACIZUMAB
     Indication: RETROPERITONEAL CANCER
     Dosage: Q21 DAY
     Route: 065
     Dates: start: 20170604
  21. XELODA [Suspect]
     Active Substance: CAPECITABINE
     Indication: COLON CANCER
     Route: 065
  22. LISINOPRIL. [Concomitant]
     Active Substance: LISINOPRIL
     Route: 065
  23. FLUOROURACIL. [Concomitant]
     Active Substance: FLUOROURACIL
  24. PRILOCAINE [Concomitant]
     Active Substance: PRILOCAINE
     Route: 061
  25. AVASTIN [Suspect]
     Active Substance: BEVACIZUMAB
     Indication: METASTASES TO PERITONEUM
  26. ESOMEPRAZOLE MAGNESIUM. [Concomitant]
     Active Substance: ESOMEPRAZOLE MAGNESIUM
     Dosage: DELAYED RELEASE
     Route: 065
  27. FERATE [Concomitant]
     Route: 065
  28. LIDOCAINE. [Concomitant]
     Active Substance: LIDOCAINE
     Route: 061
  29. FOLINIC ACID [Concomitant]
     Active Substance: LEUCOVORIN
  30. XELODA [Suspect]
     Active Substance: CAPECITABINE
     Indication: RETROPERITONEAL CANCER
     Route: 065
  31. IRINOTECAN [Concomitant]
     Active Substance: IRINOTECAN
     Route: 065
  32. DEXAMETHASONE. [Concomitant]
     Active Substance: DEXAMETHASONE
     Route: 065

REACTIONS (7)
  - Nausea [Recovered/Resolved]
  - Diarrhoea [Unknown]
  - Abdominal pain [Recovered/Resolved with Sequelae]
  - Fungal infection [Unknown]
  - Depression [Recovered/Resolved]
  - Neuralgia [Unknown]
  - Anxiety [Unknown]
